FAERS Safety Report 8181039-X (Version None)
Quarter: 2012Q1

REPORT INFORMATION
  Report Type: 
  Country: None (occurrence: None)
  Receive Date: 20120302
  Receipt Date: 20120227
  Transmission Date: 20120608
  Serious: Yes (Hospitalization, Other)
  Sender: FDA-Public Use
  Company Number: US-PFIZER INC-2012051270

PATIENT
  Sex: Male
  Weight: 0.58 kg

DRUGS (8)
  1. VORICONAZOLE [Interacting]
     Dosage: 7.8 MG/KG, Q12HRS
     Route: 042
  2. VORICONAZOLE [Suspect]
     Indication: ASPERGILLOSIS
     Dosage: 9 MG/KG, (EVERY 12 HOURS)
     Route: 042
  3. VORICONAZOLE [Interacting]
     Dosage: 6.3 MG/KG, Q12HRS
     Route: 042
  4. MIDAZOLAM [Interacting]
  5. LORAZEPAM [Interacting]
  6. VORICONAZOLE [Interacting]
     Dosage: 7.3 MG/KG, Q12HRS
     Route: 042
  7. VORICONAZOLE [Interacting]
     Dosage: 6.9 MG/KG, Q12HRS
     Route: 042
  8. MICAFUNGIN [Concomitant]
     Dosage: 10 MG/KG, EVERY 24 HOURS
     Route: 042

REACTIONS (2)
  - DRUG INTERACTION [None]
  - HEPATIC ENZYME INCREASED [None]
